FAERS Safety Report 13370352 (Version 1)
Quarter: 2017Q1

REPORT INFORMATION
  Report Type: Spontaneous
  Country: IT (occurrence: IT)
  Receive Date: 20170324
  Receipt Date: 20170324
  Transmission Date: 20170429
  Serious: Yes (Other)
  Sender: FDA-Public Use
  Company Number: IT-FRESENIUS KABI-FK201702435

PATIENT
  Age: 38 Year
  Sex: Female
  Weight: 86 kg

DRUGS (8)
  1. SYNTOCINON [Concomitant]
     Active Substance: OXYTOCIN
     Indication: PRODUCT USED FOR UNKNOWN INDICATION
     Dates: start: 20170314, end: 20170314
  2. METHERGIN [Concomitant]
     Active Substance: METHYLERGONOVINE MALEATE
     Indication: PRODUCT USED FOR UNKNOWN INDICATION
     Dates: start: 20170314, end: 20170314
  3. LEVOBUPIVACAINA MOLTENI [Concomitant]
     Indication: PRODUCT USED FOR UNKNOWN INDICATION
     Dates: start: 20170314, end: 20170314
  4. ROPIVACAINHYDROCHLORID KABI 10 MG / ML [Suspect]
     Active Substance: ROPIVACAINE HYDROCHLORIDE
     Indication: PERIOPERATIVE ANALGESIA
     Route: 053
     Dates: start: 20170314, end: 20170314
  5. CEFAZOLINA TEVA [Concomitant]
     Active Substance: CEFAZOLIN SODIUM
     Indication: PRODUCT USED FOR UNKNOWN INDICATION
     Dates: start: 20170314, end: 20170314
  6. LIDOCAINA CLORIDRATO [Concomitant]
     Indication: PRODUCT USED FOR UNKNOWN INDICATION
     Dates: start: 20170314, end: 20170314
  7. ELETTROLITICA REIDRATANTE FKI [Concomitant]
     Indication: PRODUCT USED FOR UNKNOWN INDICATION
     Dates: start: 20170314, end: 20170314
  8. RANITIDINA S.A.L.F [Concomitant]
     Indication: PRODUCT USED FOR UNKNOWN INDICATION
     Dates: start: 20170314, end: 20170314

REACTIONS (2)
  - Defect conduction intraventricular [Not Recovered/Not Resolved]
  - Tinnitus [Not Recovered/Not Resolved]

NARRATIVE: CASE EVENT DATE: 20170314
